FAERS Safety Report 4529426-2 (Version None)
Quarter: 2004Q4

REPORT INFORMATION
  Report Type: 
  Country: None (occurrence: None)
  Receive Date: 20041216
  Receipt Date: 20041206
  Transmission Date: 20050328
  Serious: Yes (Hospitalization)
  Sender: FDA-Public Use
  Company Number: PHRM2004FR03646

PATIENT
  Age: 76 Year
  Sex: Female

DRUGS (7)
  1. FRACTAL [Suspect]
     Indication: LIPID METABOLISM DISORDER
     Dates: end: 20040922
  2. RELVENE [Suspect]
     Route: 048
     Dates: end: 20040922
  3. ART 50 [Suspect]
     Route: 048
     Dates: end: 20040922
  4. ZOLPIDEM TARTRATE [Concomitant]
     Dosage: 5 MG, DAILY
  5. NORMACOL [Concomitant]
  6. INIPOMP [Concomitant]
  7. TEMESTA [Concomitant]
     Dosage: 1 MG, DAILY

REACTIONS (13)
  - ABDOMINAL DISCOMFORT [None]
  - ABDOMINAL PAIN [None]
  - ALANINE AMINOTRANSFERASE INCREASED [None]
  - ANOREXIA [None]
  - APATHY [None]
  - ASPARTATE AMINOTRANSFERASE INCREASED [None]
  - BLOOD ALKALINE PHOSPHATASE INCREASED [None]
  - BLOOD BILIRUBIN INCREASED [None]
  - DYSGEUSIA [None]
  - FLATULENCE [None]
  - GAMMA-GLUTAMYLTRANSFERASE INCREASED [None]
  - GASTRITIS [None]
  - HEPATIC ENZYME INCREASED [None]
